FAERS Safety Report 21577643 (Version 1)
Quarter: 2022Q4

REPORT INFORMATION
  Report Type: Spontaneous
  Country: US (occurrence: None)
  Receive Date: 20221109
  Receipt Date: 20221109
  Transmission Date: 20230113
  Serious: Yes (Other)
  Sender: FDA-Public Use
  Company Number: None

PATIENT
  Age: 30 Day
  Sex: Female
  Weight: 3.7 kg

DRUGS (3)
  1. MORPHINE [Suspect]
     Active Substance: MORPHINE
     Indication: Drug withdrawal syndrome
     Dosage: OTHER FREQUENCY : Q 3 H?
     Route: 048
     Dates: end: 20221108
  2. CLONIDINE [Suspect]
     Active Substance: CLONIDINE
     Dates: start: 20221010, end: 20221109
  3. MORPHINE [Concomitant]
     Active Substance: MORPHINE
     Dates: start: 20221010, end: 20221014

REACTIONS (6)
  - Skin swelling [None]
  - Injury [None]
  - Fall [None]
  - Drug withdrawal syndrome [None]
  - Skull fracture [None]
  - Epidural haemorrhage [None]

NARRATIVE: CASE EVENT DATE: 20221014
